FAERS Safety Report 16939045 (Version 2)
Quarter: 2019Q4

REPORT INFORMATION
  Report Type: Spontaneous
  Country: JP (occurrence: JP)
  Receive Date: 20191020
  Receipt Date: 20191129
  Transmission Date: 20200122
  Serious: Yes (Other)
  Sender: FDA-Public Use
  Company Number: JP-CELLTRION INC.-2019JP025604

PATIENT

DRUGS (9)
  1. METOLATE [Suspect]
     Active Substance: METHOTREXATE
     Indication: RHEUMATOID ARTHRITIS
     Dosage: 6 MILLIGRAM, WEEKLY
     Route: 048
     Dates: start: 2010, end: 20180930
  2. INFLIXIMAB BS FOR I.V. INFUSION100 MG [NK] [Suspect]
     Active Substance: INFLIXIMAB
     Dosage: 300 MILLIGRAM, EVERY INFUSION DAY
     Route: 041
     Dates: start: 20190806, end: 20190806
  3. INFLIXIMAB BS FOR I.V. INFUSION100 MG [NK] [Suspect]
     Active Substance: INFLIXIMAB
     Indication: RHEUMATOID ARTHRITIS
     Dosage: 3 MILLIGRAM/KILOGRAM, EVERY INFUSION DAY
     Route: 041
     Dates: start: 20181105, end: 20190611
  4. METOLATE [Suspect]
     Active Substance: METHOTREXATE
     Dosage: 4 MILLIGRAM EVERY DAY
     Route: 048
     Dates: start: 20191001
  5. HYDROCORTONE [HYDROCORTISONE] [Concomitant]
     Indication: PROPHYLAXIS
     Dosage: UNK
     Dates: start: 2010
  6. RIMATIL [Concomitant]
     Active Substance: BUCILLAMINE
     Indication: RHEUMATOID ARTHRITIS
     Dosage: UNK
     Dates: start: 2012
  7. FOLIAMIN [Concomitant]
     Active Substance: FOLIC ACID
     Indication: PROPHYLAXIS
     Dosage: UNK
     Dates: start: 2010, end: 20180805
  8. CELECOX [Concomitant]
     Active Substance: CELECOXIB
     Indication: RHEUMATOID ARTHRITIS
     Dosage: UNK
     Dates: start: 2012
  9. INFLIXIMAB BS FOR I.V. INFUSION100 MG [NK] [Suspect]
     Active Substance: INFLIXIMAB
     Dosage: 300 MILLIGRAM, EVERY INFUSION DAY
     Route: 041
     Dates: start: 20191001, end: 20191001

REACTIONS (2)
  - Condition aggravated [Unknown]
  - Alopecia [Unknown]

NARRATIVE: CASE EVENT DATE: 20190806
